FAERS Safety Report 8019313-X (Version None)
Quarter: 2011Q4

REPORT INFORMATION
  Report Type: 
  Country: None (occurrence: None)
  Receive Date: 20111227
  Receipt Date: 20111214
  Transmission Date: 20120403
  Serious: Yes (Hospitalization)
  Sender: FDA-Public Use
  Company Number: DSU-2011-09356

PATIENT
  Sex: Male

DRUGS (1)
  1. WELCHOL [Suspect]
     Indication: HYPERLIPIDAEMIA
     Dosage: PER ORAL
     Route: 048

REACTIONS (2)
  - INTESTINAL OBSTRUCTION [None]
  - CONSTIPATION [None]
